FAERS Safety Report 23269580 (Version 2)
Quarter: 2023Q4

REPORT INFORMATION
  Report Type: Report from Study
  Country: BR (occurrence: BR)
  Receive Date: 20231207
  Receipt Date: 20231222
  Transmission Date: 20240110
  Serious: Yes (Hospitalization, Other)
  Sender: FDA-Public Use
  Company Number: BR-CELLTRION INC.-2023BR008507

PATIENT

DRUGS (5)
  1. INFLIXIMAB [Suspect]
     Active Substance: INFLIXIMAB
     Indication: Colitis ulcerative
     Dosage: 5 AMPOULES
     Route: 042
     Dates: start: 20230323
  2. INFLIXIMAB [Suspect]
     Active Substance: INFLIXIMAB
     Dosage: 5 AMPOULES EVERY 2 MONTHS
     Route: 042
     Dates: start: 20230809
  3. MESALAMINE [Concomitant]
     Active Substance: MESALAMINE
     Indication: Colitis
     Dosage: 800MG, 4 CAPSULES A DAY
     Route: 048
     Dates: start: 2015
  4. AZATHIOPRINE [Concomitant]
     Active Substance: AZATHIOPRINE
     Indication: Colitis
     Dosage: 50MG, 4 CAPSULES DAY
     Route: 048
     Dates: start: 2017
  5. LOSARTAN [Concomitant]
     Active Substance: LOSARTAN
     Indication: Hypertension
     Dosage: 100MG, 3 CAPSULES DAY
     Route: 048
     Dates: start: 2014

REACTIONS (16)
  - Haematochezia [Unknown]
  - Immunodeficiency [Unknown]
  - Frequent bowel movements [Unknown]
  - Secretion discharge [Unknown]
  - Abdominal pain [Unknown]
  - Asthenia [Unknown]
  - Nervousness [Unknown]
  - Blood pressure increased [Unknown]
  - Colitis ulcerative [Unknown]
  - Discomfort [Unknown]
  - Sleep disorder [Unknown]
  - Influenza [Recovering/Resolving]
  - Nasopharyngitis [Unknown]
  - Intentional dose omission [Unknown]
  - Therapy interrupted [Unknown]
  - Product availability issue [Unknown]

NARRATIVE: CASE EVENT DATE: 20231210
